FAERS Safety Report 4822155-7 (Version None)
Quarter: 2005Q4

REPORT INFORMATION
  Report Type: 
  Country: None (occurrence: None)
  Receive Date: 20051103
  Receipt Date: 20051019
  Transmission Date: 20060501
  Serious: Yes (Other)
  Sender: FDA-Public Use
  Company Number: GBS051018815

PATIENT
  Age: 32 Year
  Sex: Female

DRUGS (5)
  1. CYMBALTA [Suspect]
     Indication: DEPRESSION
     Dosage: 60 MG
     Dates: start: 20050930, end: 20051006
  2. METHOTREXATE [Concomitant]
  3. FOLIC ACID [Concomitant]
  4. CETIRIZINE HCL [Concomitant]
  5. YASMIN [Concomitant]

REACTIONS (5)
  - AGITATION [None]
  - ELEVATED MOOD [None]
  - EUPHORIC MOOD [None]
  - HALLUCINATION, AUDITORY [None]
  - RESTLESSNESS [None]
